FAERS Safety Report 20467839 (Version 1)
Quarter: 2022Q1

REPORT INFORMATION
  Report Type: Other
  Country: US (occurrence: None)
  Receive Date: 20220214
  Receipt Date: 20220214
  Transmission Date: 20220423
  Serious: Yes (Hospitalization)
  Sender: FDA-Public Use
  Company Number: US-ROCHE-2926959

PATIENT
  Age: 46 Year
  Sex: Female
  Weight: 102.15 kg

DRUGS (5)
  1. OCREVUS [Suspect]
     Active Substance: OCRELIZUMAB
     Indication: Relapsing-remitting multiple sclerosis
     Dosage: YES, 300 MG ONCE IN 15 DAYS?DOT: 07/09/2021, 05/03/2021, 02/09/2020 AND 02/03/2020
     Route: 042
  2. PROTONIX [Concomitant]
     Active Substance: PANTOPRAZOLE SODIUM
     Indication: Abdominal pain upper
     Route: 048
  3. PROTONIX [Concomitant]
     Active Substance: PANTOPRAZOLE SODIUM
     Indication: Abdominal pain upper
  4. BENADRYL [Concomitant]
     Active Substance: DIPHENHYDRAMINE HYDROCHLORIDE
     Indication: Premedication
  5. TYLENOL [Concomitant]
     Active Substance: ACETAMINOPHEN
     Indication: Premedication

REACTIONS (13)
  - COVID-19 [Not Recovered/Not Resolved]
  - Pneumonia [Unknown]
  - Pruritus [Recovered/Resolved]
  - Chills [Recovered/Resolved]
  - Nausea [Recovered/Resolved]
  - Vomiting [Recovered/Resolved]
  - Diarrhoea [Recovered/Resolved]
  - Pharyngeal swelling [Recovered/Resolved]
  - Throat tightness [Recovered/Resolved]
  - Fatigue [Unknown]
  - Tremor [Unknown]
  - Eating disorder [Unknown]
  - Weight decreased [Unknown]

NARRATIVE: CASE EVENT DATE: 20210907
